FAERS Safety Report 17315391 (Version 3)
Quarter: 2020Q1

REPORT INFORMATION
  Report Type: Report from Study
  Country: US (occurrence: US)
  Receive Date: 20200124
  Receipt Date: 20200221
  Transmission Date: 20200409
  Serious: Yes (Hospitalization, Other)
  Sender: FDA-Public Use
  Company Number: NVSC2020US014326

PATIENT
  Age: 58 Year
  Sex: Male
  Weight: 54.2 kg

DRUGS (3)
  1. GSK1120212 [Suspect]
     Active Substance: TRAMETINIB
     Dosage: 0.5 MG
     Route: 048
     Dates: start: 20200209
  2. GSK1120212 [Suspect]
     Active Substance: TRAMETINIB
     Indication: LANGERHANS^ CELL HISTIOCYTOSIS
     Dosage: 0.5 MG
     Route: 048
     Dates: start: 20180813, end: 20191227
  3. GSK1120212 [Suspect]
     Active Substance: TRAMETINIB
     Dosage: 0.5 MG
     Route: 048
     Dates: start: 20200102

REACTIONS (5)
  - Localised infection [Not Recovered/Not Resolved]
  - Depressed level of consciousness [Recovered/Resolved]
  - Anaemia [Not Recovered/Not Resolved]
  - Haemorrhage [Unknown]
  - Delirium [Recovering/Resolving]

NARRATIVE: CASE EVENT DATE: 20191227
